FAERS Safety Report 16284974 (Version 1)
Quarter: 2019Q2

REPORT INFORMATION
  Report Type: Spontaneous
  Country: US (occurrence: US)
  Receive Date: 20190402
  Receipt Date: 20190402
  Transmission Date: 20190711
  Serious: Yes (Hospitalization)
  Sender: FDA-Public Use
  Company Number: None

PATIENT
  Sex: Female

DRUGS (5)
  1. ESCITALOPRAM [Concomitant]
     Active Substance: ESCITALOPRAM OXALATE
  2. GUANFACINE. [Concomitant]
     Active Substance: GUANFACINE
  3. KITABIS PAK [Suspect]
     Active Substance: TOBRAMYCIN
  4. CLINDAMYCIN. [Concomitant]
     Active Substance: CLINDAMYCIN
  5. PULMOZYME [Suspect]
     Active Substance: DORNASE ALFA
     Dosage: ?          OTHER FREQUENCY:BID X28DAYS ;?
     Route: 055
     Dates: start: 20180223

REACTIONS (1)
  - Pulmonary function test decreased [None]
